FAERS Safety Report 8978437 (Version 1)
Quarter: 2012Q4

REPORT INFORMATION
  Report Type: Spontaneous
  Country: US (occurrence: None)
  Receive Date: 20121218
  Receipt Date: 20121218
  Transmission Date: 20130627
  Serious: Yes (Hospitalization, Other)
  Sender: FDA-Public Use
  Company Number: None

PATIENT
  Sex: Male
  Weight: 90.72 kg

DRUGS (2)
  1. ZYPREXA [Suspect]
     Indication: SLEEP DISORDER
     Dosage: 10MG 1 A DAY
     Dates: start: 2000
  2. ZYPREXA [Suspect]
     Indication: HALLUCINATION AUDITORY
     Dosage: 10MG 1 A DAY
     Dates: start: 2000

REACTIONS (14)
  - Drug dependence [None]
  - Drug withdrawal syndrome [None]
  - Nausea [None]
  - Headache [None]
  - Muscle spasms [None]
  - Cerebral vasoconstriction [None]
  - Decreased appetite [None]
  - Weight decreased [None]
  - Cold sweat [None]
  - Pruritus [None]
  - Anxiety [None]
  - Hyperacusis [None]
  - Chest pain [None]
  - Abdominal pain upper [None]
